FAERS Safety Report 13051981 (Version 1)
Quarter: 2016Q4

REPORT INFORMATION
  Report Type: Spontaneous
  Country: CA (occurrence: CA)
  Receive Date: 20161221
  Receipt Date: 20161221
  Transmission Date: 20170207
  Serious: Yes (Hospitalization, Other)
  Sender: FDA-Public Use
  Company Number: CA-BRISTOL-MYERS SQUIBB COMPANY-BMS-2016-107471

PATIENT
  Age: 66 Year
  Sex: Female

DRUGS (1)
  1. ORENCIA [Suspect]
     Active Substance: ABATACEPT
     Indication: RHEUMATOID ARTHRITIS
     Dosage: UNK
     Route: 065
     Dates: start: 19960701

REACTIONS (7)
  - Knee arthroplasty [Unknown]
  - Arthralgia [Unknown]
  - Pain in extremity [Unknown]
  - Sinusitis [Unknown]
  - Joint swelling [Unknown]
  - Pneumonia bacterial [Unknown]
  - Bacterial test positive [Unknown]

NARRATIVE: CASE EVENT DATE: 201611
